FAERS Safety Report 18332272 (Version 3)
Quarter: 2020Q4

REPORT INFORMATION
  Report Type: Spontaneous
  Country: US (occurrence: US)
  Receive Date: 20200930
  Receipt Date: 20201216
  Transmission Date: 20210113
  Serious: Yes (Hospitalization, Other)
  Sender: FDA-Public Use
  Company Number: US-PFIZER INC-2020374437

PATIENT
  Age: 29 Year
  Sex: Female

DRUGS (4)
  1. MEPERIDINE HCL [Suspect]
     Active Substance: MEPERIDINE HYDROCHLORIDE
     Dosage: 100 MG, EVERY THREE TO FOUR HOURS FOR 3 DAYS
     Route: 030
  2. MORPHINE [Concomitant]
     Active Substance: MORPHINE
     Route: 042
  3. MEPERIDINE HYDROCHLORIDE. [Suspect]
     Active Substance: MEPERIDINE HYDROCHLORIDE
     Dosage: 200MG, EVERY 3 TO 4 HOURS
  4. MEPERIDINE HYDROCHLORIDE. [Suspect]
     Active Substance: MEPERIDINE HYDROCHLORIDE
     Dosage: 100 MG (EVERY THREE TO FOUR HOURS)
     Route: 048

REACTIONS (5)
  - Myoclonus [Recovered/Resolved]
  - Muscle twitching [Recovered/Resolved]
  - Tonic convulsion [Recovered/Resolved]
  - Neurotoxicity [Recovered/Resolved]
  - Dyskinesia [Recovered/Resolved]
